FAERS Safety Report 7691579-5 (Version None)
Quarter: 2011Q3

REPORT INFORMATION
  Report Type: 
  Country: None (occurrence: None)
  Receive Date: 20110818
  Receipt Date: 20110725
  Transmission Date: 20111222
  Serious: Yes (Hospitalization, Other)
  Sender: FDA-Public Use
  Company Number: BR-PFIZER INC-2011169358

PATIENT
  Age: 53 Year
  Sex: Female
  Weight: 80 kg

DRUGS (6)
  1. VARENICLINE TARTRATE [Suspect]
     Dosage: 1 MG, 2X/DAY
     Route: 048
     Dates: start: 20110101
  2. VARENICLINE TARTRATE [Suspect]
     Indication: SMOKING CESSATION THERAPY
     Dosage: UNK
     Route: 048
     Dates: start: 20110722, end: 20110701
  3. PRESS PLUS [Concomitant]
     Indication: BLOOD PRESSURE INCREASED
     Dosage: AMLODIPINE 5MG/ BENAZEPRIL 10MG
     Dates: start: 20110701
  4. CRESTOR [Concomitant]
     Indication: HYPERTENSION
     Dosage: 5/10 MG, ONCE DAILY
     Dates: start: 20110101
  5. VARENICLINE TARTRATE [Suspect]
     Dosage: 0.5 MG, 2X/DAY
     Route: 048
     Dates: start: 20110701, end: 20110701
  6. PREDNISONE [Concomitant]
     Indication: ADRENOCORTICAL STEROID THERAPY
     Dosage: 20 MG, EVERY 8 HOURS
     Route: 048

REACTIONS (6)
  - URINARY INCONTINENCE [None]
  - COUGH [None]
  - OEDEMA PERIPHERAL [None]
  - HYPOAESTHESIA [None]
  - BLOOD PRESSURE INCREASED [None]
  - DYSPNOEA [None]
